FAERS Safety Report 13340253 (Version 1)
Quarter: 2017Q1

REPORT INFORMATION
  Report Type: Spontaneous
  Country: US (occurrence: US)
  Receive Date: 20170316
  Receipt Date: 20170316
  Transmission Date: 20170428
  Serious: Yes (Other)
  Sender: FDA-Public Use
  Company Number: US-MEDA-2017030023

PATIENT
  Sex: Female
  Weight: 73 kg

DRUGS (5)
  1. SOMA [Suspect]
     Active Substance: CARISOPRODOL
  2. PERCOCET [Suspect]
     Active Substance: ACETAMINOPHEN\OXYCODONE HYDROCHLORIDE
     Indication: PAIN
     Dates: end: 201612
  3. PERCOCET [Suspect]
     Active Substance: ACETAMINOPHEN\OXYCODONE HYDROCHLORIDE
     Indication: FIBROMYALGIA
     Dates: end: 201612
  4. LYRICA [Suspect]
     Active Substance: PREGABALIN
  5. OXYCODONE [Suspect]
     Active Substance: OXYCODONE
     Indication: PAIN

REACTIONS (2)
  - Hallucination [Unknown]
  - Drug abuse [Unknown]
